FAERS Safety Report 6898030-3 (Version None)
Quarter: 2010Q3

REPORT INFORMATION
  Report Type: 
  Country: None (occurrence: None)
  Receive Date: 20100802
  Receipt Date: 20070823
  Transmission Date: 20110219
  Serious: Yes (Other)
  Sender: FDA-Public Use
  Company Number: US-PFIZER INC-2007043824

PATIENT
  Sex: Male

DRUGS (9)
  1. LYRICA [Suspect]
     Indication: CONVULSION
     Route: 048
     Dates: start: 20060801, end: 20070301
  2. DILANTIN [Concomitant]
  3. KEPPRA [Concomitant]
  4. BACLOFEN [Concomitant]
  5. SORBITOL [Concomitant]
  6. DULCOLAX [Concomitant]
  7. MILK OF MAGNESIA TAB [Concomitant]
  8. CLEOCIN [Concomitant]
  9. RETIN-A [Concomitant]

REACTIONS (1)
  - THROMBOCYTOPENIA [None]
